FAERS Safety Report 8064750-0 (Version None)
Quarter: 2012Q1

REPORT INFORMATION
  Report Type: 
  Country: None (occurrence: None)
  Receive Date: 20120124
  Receipt Date: 20120112
  Transmission Date: 20120608
  Serious: Yes (Hospitalization, Other)
  Sender: FDA-Public Use
  Company Number: US-AMGEN-USASP2012002439

PATIENT
  Age: 74 Year
  Sex: Male

DRUGS (1)
  1. ENBREL [Suspect]
     Indication: PSORIATIC ARTHROPATHY
     Dosage: 50 MG, QWK
     Dates: start: 20060511

REACTIONS (9)
  - URETERIC STENOSIS [None]
  - HAEMORRHAGE URINARY TRACT [None]
  - SEPSIS [None]
  - DEVICE LEAKAGE [None]
  - OEDEMA PERIPHERAL [None]
  - CHROMATURIA [None]
  - MOBILITY DECREASED [None]
  - MUSCULAR WEAKNESS [None]
  - URINARY TRACT INFECTION [None]
